FAERS Safety Report 6766646-0 (Version None)
Quarter: 2010Q2

REPORT INFORMATION
  Report Type: 
  Country: None (occurrence: None)
  Receive Date: 20100611
  Receipt Date: 20100601
  Transmission Date: 20101027
  Serious: No
  Sender: FDA-Public Use
  Company Number: B0635300A

PATIENT
  Sex: Female
  Weight: 51 kg

DRUGS (4)
  1. RELENZA [Suspect]
     Indication: INFLUENZA
     Route: 055
     Dates: start: 20091205, end: 20091209
  2. INCREMIN [Concomitant]
     Dosage: 15ML PER DAY
     Route: 048
     Dates: start: 20091121, end: 20091221
  3. CALONAL [Concomitant]
     Dosage: 2IUAX PER DAY
     Route: 048
     Dates: start: 20091205, end: 20091209
  4. NIZORAL [Concomitant]
     Route: 061
     Dates: start: 20091231

REACTIONS (2)
  - DELIVERY [None]
  - DRUG EXPOSURE DURING PREGNANCY [None]
